FAERS Safety Report 5570673-9 (Version None)
Quarter: 2007Q4

REPORT INFORMATION
  Report Type: 
  Country: None (occurrence: None)
  Receive Date: 20071221
  Receipt Date: 20071211
  Transmission Date: 20080405
  Serious: Yes (Other)
  Sender: FDA-Public Use
  Company Number: FR-JNJFOC-20071204585

PATIENT
  Age: 60 Year
  Sex: Male

DRUGS (1)
  1. ACETAMINOPHEN AND CODEINE PHOSPHATE [Suspect]
     Indication: PAIN
     Dosage: FOR 14 YEARS
     Route: 065

REACTIONS (2)
  - HEPATIC CIRRHOSIS [None]
  - OVERDOSE [None]
